FAERS Safety Report 7273254-4 (Version None)
Quarter: 2011Q1

REPORT INFORMATION
  Report Type: 
  Country: None (occurrence: None)
  Receive Date: 20110203
  Receipt Date: 20110119
  Transmission Date: 20110831
  Serious: Yes (Hospitalization)
  Sender: FDA-Public Use
  Company Number: US-CELGENEUS-163-21880-11012104

PATIENT
  Sex: Female

DRUGS (2)
  1. REVLIMID [Suspect]
     Route: 048
     Dates: start: 20110101
  2. REVLIMID [Suspect]
     Route: 048
     Dates: start: 20100902

REACTIONS (2)
  - FULL BLOOD COUNT DECREASED [None]
  - ADVERSE EVENT [None]
